FAERS Safety Report 5014585-8 (Version None)
Quarter: 2006Q2

REPORT INFORMATION
  Report Type: 
  Country: None (occurrence: None)
  Receive Date: 20060531
  Receipt Date: 20060209
  Transmission Date: 20061013
  Serious: Yes (Hospitalization, Other)
  Sender: FDA-Public Use
  Company Number: PHEH2006US01965

PATIENT
  Age: 66 Year
  Sex: Female
  Weight: 102.49 kg

DRUGS (15)
  1. DIOVAN [Suspect]
     Indication: HYPERTENSION
     Dosage: 160 MG, UNK
     Route: 048
     Dates: start: 20020101, end: 20051227
  2. AVANDIA [Concomitant]
     Indication: DIABETES MELLITUS
     Route: 048
     Dates: start: 20000101
  3. ZOCOR [Concomitant]
     Indication: HYPERCHOLESTEROLAEMIA
     Route: 048
  4. ECOTRIN [Concomitant]
     Indication: THROMBOSIS PROPHYLAXIS
     Dates: start: 20040101
  5. ALOXI [Concomitant]
     Indication: PROPHYLAXIS OF NAUSEA AND VOMITING
     Route: 042
     Dates: start: 20020430, end: 20051213
  6. DECADRON SRC [Concomitant]
     Dates: start: 20050829, end: 20051214
  7. DECADRON SRC [Concomitant]
     Dates: start: 20050830, end: 20051213
  8. COMPAZINE [Concomitant]
     Indication: PROPHYLAXIS OF NAUSEA AND VOMITING
     Dosage: 10 MG, Q 4 H
     Dates: start: 20050901
  9. ATIVAN [Concomitant]
     Indication: ANXIETY
     Dosage: 1 MG, Q 4H
     Dates: start: 20050830
  10. ANZEMET [Concomitant]
     Indication: NAUSEA
     Dosage: 100 MG, Q 8 H
     Dates: start: 20051011
  11. GINGER [Concomitant]
     Indication: NAUSEA
     Dosage: 1-2 LOZENGERS
     Dates: start: 20051011
  12. GINGER [Concomitant]
     Dosage: PRN
     Route: 048
     Dates: start: 20051011
  13. NEULASTA [Concomitant]
     Indication: PROPHYLAXIS
     Dosage: 6 MG
     Route: 058
     Dates: start: 20050831, end: 20051213
  14. CIPRO [Concomitant]
     Indication: INFECTION PROPHYLAXIS
     Dosage: 500 MG, BID
     Route: 047
     Dates: start: 20051220, end: 20051227
  15. HERCEPTIN [Concomitant]
     Indication: CHEMOTHERAPY
     Dosage: UNK, QW
     Route: 042
     Dates: start: 20050830

REACTIONS (9)
  - BLOOD CREATININE INCREASED [None]
  - BLOOD UREA INCREASED [None]
  - BREAST CANCER [None]
  - CAROTID ENDARTERECTOMY [None]
  - DIALYSIS [None]
  - HAEMOGLOBIN DECREASED [None]
  - NEUTROPHIL COUNT DECREASED [None]
  - RENAL FAILURE ACUTE [None]
  - WHITE BLOOD CELL COUNT INCREASED [None]
